FAERS Safety Report 9542466 (Version 2)
Quarter: 2013Q3

REPORT INFORMATION
  Report Type: Spontaneous
  Country: US (occurrence: US)
  Receive Date: 20130923
  Receipt Date: 20130923
  Transmission Date: 20140515
  Serious: No
  Sender: FDA-Public Use
  Company Number: US-MYLANLABS-2013S1002373

PATIENT
  Age: 52 Year
  Sex: Female
  Weight: 90.72 kg

DRUGS (16)
  1. NITROGLYCERIN TRANSDERMAL SYSTEM [Suspect]
     Indication: CHEST PAIN
     Dosage: APPLY ONE PATCH IN THE MORNING AND TAKE OFF IN THE EVENING.
     Route: 062
     Dates: start: 2011
  2. NTG [Concomitant]
     Indication: CHEST PAIN
     Route: 060
  3. LISINOPRIL [Concomitant]
     Indication: ANGINA PECTORIS
     Dates: start: 201208
  4. CARDIZEM [Concomitant]
     Indication: HEART RATE INCREASED
  5. CARDIZEM [Concomitant]
     Indication: HEART RATE INCREASED
  6. TRIAMTEREEN/HYDROCHLOOTTHIAZIDE [Concomitant]
     Indication: FLUID RETENTION
  7. WELLBUTRIN XL [Concomitant]
     Indication: DEPRESSION
  8. BUSPAR [Concomitant]
     Indication: ANXIETY
  9. ASA [Concomitant]
  10. POTASSIUM [Concomitant]
  11. ZANTAC [Concomitant]
     Indication: GASTROOESOPHAGEAL REFLUX DISEASE
  12. COLACE [Concomitant]
     Indication: CONSTIPATION
  13. VITAMIN D [Concomitant]
  14. PROTONIX [Concomitant]
  15. K-DUR [Concomitant]
  16. IBU [Concomitant]

REACTIONS (7)
  - Application site rash [Recovered/Resolved]
  - Application site pruritus [Recovered/Resolved]
  - Blister [Recovered/Resolved]
  - Dry skin [Recovered/Resolved]
  - Application site vesicles [Recovered/Resolved]
  - Application site urticaria [Recovered/Resolved]
  - Secretion discharge [Recovered/Resolved]
